FAERS Safety Report 6278776-0 (Version None)
Quarter: 2009Q3

REPORT INFORMATION
  Report Type: 
  Country: None (occurrence: None)
  Receive Date: 20090721
  Receipt Date: 20090709
  Transmission Date: 20100115
  Serious: Yes (Other)
  Sender: FDA-Public Use
  Company Number: 236992K09USA

PATIENT
  Age: 44 Year
  Sex: Female
  Weight: 100 kg

DRUGS (4)
  1. REBIF [Suspect]
     Indication: MULTIPLE SCLEROSIS
     Dosage: 44 MCG, 3 IN 1 WEEKS, SUBCUTANEOUS
     Route: 058
     Dates: start: 20090130
  2. NORTRIPTYLINE (NORTRIPTYLINE /00006501/) [Concomitant]
  3. BACLOFEN [Concomitant]
  4. CITALOPRAM (CITALOPRAM /00582601/) [Concomitant]

REACTIONS (2)
  - INJECTION SITE HAEMATOMA [None]
  - TYPE 2 DIABETES MELLITUS [None]
